FAERS Safety Report 12584998 (Version 1)
Quarter: 2016Q3

REPORT INFORMATION
  Report Type: Spontaneous
  Country: US (occurrence: US)
  Receive Date: 20160722
  Receipt Date: 20160722
  Transmission Date: 20161109
  Serious: No
  Sender: FDA-Public Use
  Company Number: US-SHIRE-US201608461

PATIENT
  Age: 31 Year
  Sex: Female

DRUGS (1)
  1. VYVANSE [Suspect]
     Active Substance: LISDEXAMFETAMINE DIMESYLATE
     Indication: BINGE EATING
     Dosage: 30 MG, UNKNOWN
     Route: 048

REACTIONS (2)
  - Panic attack [Unknown]
  - Anxiety [Unknown]
